FAERS Safety Report 7921191-1 (Version None)
Quarter: 2011Q4

REPORT INFORMATION
  Report Type: 
  Country: None (occurrence: None)
  Receive Date: 20111117
  Receipt Date: 20111108
  Transmission Date: 20120403
  Serious: Yes (Hospitalization)
  Sender: FDA-Public Use
  Company Number: ZA-JNJFOC-20100906500

PATIENT
  Age: 67 Year
  Sex: Male
  Weight: 82.5 kg

DRUGS (10)
  1. METHOTREXATE [Concomitant]
     Indication: RHEUMATOID ARTHRITIS
     Dates: start: 20100208
  2. VASCARD [Concomitant]
     Indication: HYPERTENSION
     Route: 048
     Dates: start: 20050101
  3. GOLIMUMAB [Suspect]
     Indication: RHEUMATOID ARTHRITIS
     Route: 058
     Dates: start: 20100916
  4. GOLIMUMAB [Suspect]
     Route: 058
     Dates: start: 20100817
  5. APIDRA [Concomitant]
     Indication: DIABETES MELLITUS
     Route: 058
     Dates: start: 20050101
  6. SYNAP FORTE [Concomitant]
     Indication: RHEUMATOID ARTHRITIS
     Route: 048
     Dates: start: 20100331
  7. LANTUS [Concomitant]
     Indication: DIABETES MELLITUS
     Route: 058
     Dates: start: 20050101
  8. XALATAN [Concomitant]
     Indication: GLAUCOMA
     Route: 047
     Dates: start: 20070101
  9. CATAFLAM D [Concomitant]
     Indication: RHEUMATOID ARTHRITIS
     Route: 048
     Dates: start: 20100331
  10. IRBESARTAN AND HYDROCHLOROTHIAZIDE [Concomitant]
     Indication: HYPERTENSION
     Dates: start: 20050101

REACTIONS (3)
  - SEPSIS [None]
  - HYPONATRAEMIA [None]
  - ARTHRITIS BACTERIAL [None]
